FAERS Safety Report 22332868 (Version 3)
Quarter: 2023Q2

REPORT INFORMATION
  Report Type: Spontaneous
  Country: US (occurrence: US)
  Receive Date: 20230517
  Receipt Date: 20230628
  Transmission Date: 20230721
  Serious: Yes (Hospitalization)
  Sender: FDA-Public Use
  Company Number: US-Calliditas-2023CAL00463

PATIENT
  Age: 80 Year
  Sex: Male

DRUGS (9)
  1. TARPEYO [Suspect]
     Active Substance: BUDESONIDE
     Indication: Haematuria
     Dosage: 16 MG (4 MG CAPSULES) ONCE DAILY
     Route: 048
     Dates: start: 20230513
  2. HYDRALAZINE [Suspect]
     Active Substance: HYDRALAZINE HYDROCHLORIDE
     Indication: Product used for unknown indication
     Dosage: THEN INCREASED TO 100 MG
     Dates: start: 20230511, end: 202305
  3. IMDUR [Concomitant]
     Active Substance: ISOSORBIDE MONONITRATE
  4. CRESTOR [Concomitant]
     Active Substance: ROSUVASTATIN CALCIUM
  5. CLONIDINE [Concomitant]
     Active Substance: CLONIDINE
  6. DOCUSATE [Concomitant]
     Active Substance: DOCUSATE
  7. ROPINIROLE [Concomitant]
     Active Substance: ROPINIROLE
  8. INDAPAMIDE [Concomitant]
     Active Substance: INDAPAMIDE
  9. DILTIAZEM [Concomitant]
     Active Substance: DILTIAZEM

REACTIONS (11)
  - Off label use [Unknown]
  - Pyrexia [Recovered/Resolved]
  - Chills [Recovered/Resolved]
  - Insomnia [Recovered/Resolved]
  - Contusion [Recovered/Resolved]
  - Pruritus [Recovered/Resolved]
  - Shock [Recovered/Resolved]
  - Pharyngeal swelling [Recovered/Resolved]
  - Swollen tongue [Recovered/Resolved]
  - Hypertensive crisis [Recovering/Resolving]
  - Blood pressure decreased [Recovered/Resolved]

NARRATIVE: CASE EVENT DATE: 20230511
